FAERS Safety Report 6981742-0 (Version None)
Quarter: 2010Q3

REPORT INFORMATION
  Report Type: 
  Country: None (occurrence: None)
  Receive Date: 20100914
  Receipt Date: 20091006
  Transmission Date: 20110219
  Serious: No
  Sender: FDA-Public Use
  Company Number: US-PFIZER INC-2009250040

PATIENT
  Sex: Female
  Weight: 72.6 kg

DRUGS (12)
  1. LYRICA [Suspect]
     Indication: FIBROMYALGIA
     Dosage: 150 MG, 2X/DAY
     Dates: start: 20081001
  2. LEVOTHYROXINE [Concomitant]
     Indication: GOITRE
     Dosage: 25 MG, UNK
  3. PROPRANOLOL [Concomitant]
     Dosage: 40 MG, UNK
  4. REYATAZ [Concomitant]
     Dosage: 300 MG, 1X/DAY
  5. TRUVADA [Concomitant]
     Dosage: 200 MG, 1X/DAY
  6. NORVIR [Concomitant]
     Dosage: UNK
  7. VICODIN [Concomitant]
     Dosage: UNK
  8. MECLIZINE [Concomitant]
     Indication: VERTIGO
     Dosage: UNK
  9. PREMPRO [Concomitant]
     Dosage: 0.3MG TO 1.5MG
  10. LAMICTAL [Concomitant]
     Dosage: 100 MG, 1X/DAY
  11. FLONASE [Concomitant]
     Dosage: UNK
  12. XANAX [Concomitant]
     Dosage: UNK

REACTIONS (3)
  - FAT REDISTRIBUTION [None]
  - OEDEMA PERIPHERAL [None]
  - VITAMIN D DECREASED [None]
